FAERS Safety Report 8050228-7 (Version None)
Quarter: 2012Q1

REPORT INFORMATION
  Report Type: 
  Country: None (occurrence: None)
  Receive Date: 20120117
  Receipt Date: 20120111
  Transmission Date: 20120608
  Serious: Yes (Other)
  Sender: FDA-Public Use
  Company Number: US-PFIZER INC-2012009023

PATIENT
  Sex: Male
  Weight: 86.168 kg

DRUGS (5)
  1. LIPITOR [Suspect]
     Indication: MYOCARDIAL INFARCTION
     Dosage: 10 MG, DAILY
     Route: 048
  2. LIPITOR [Suspect]
     Dosage: UNK
     Route: 048
  3. AMIODARONE HCL [Suspect]
     Indication: ATRIAL FIBRILLATION
     Dosage: UNK
     Dates: end: 20060101
  4. LIPITOR [Suspect]
     Dosage: 20 MG, DAILY
     Route: 048
  5. COUMADIN [Concomitant]
     Indication: PROPHYLAXIS
     Dosage: 5MG DAILY FOR 3 DAYS/WEEK AND 5.5MG DAILY FOR 4DAYS/WEEK
     Dates: end: 20060101

REACTIONS (3)
  - ATRIAL FIBRILLATION [None]
  - CORONARY ARTERY OCCLUSION [None]
  - LIVER DISORDER [None]
